FAERS Safety Report 7078698-1 (Version None)
Quarter: 2010Q4

REPORT INFORMATION
  Report Type: 
  Country: None (occurrence: None)
  Receive Date: 20101101
  Receipt Date: 20101101
  Transmission Date: 20110411
  Serious: Yes (Death, Other)
  Sender: FDA-Public Use
  Company Number: None

PATIENT
  Sex: Female
  Weight: 52.3 kg

DRUGS (4)
  1. EFFEXOR [Suspect]
     Indication: ANXIETY
     Dosage: SAMPLE CAPSULES
     Dates: start: 20100722, end: 20100730
  2. EFFEXOR [Suspect]
     Indication: ANXIETY
     Dosage: SAMPLE CAPSULES
     Dates: start: 20100801, end: 20100808
  3. CYMBALTA [Suspect]
  4. LEXAPRO [Suspect]

REACTIONS (1)
  - COMPLETED SUICIDE [None]
